FAERS Safety Report 9333031 (Version 1)
Quarter: 2013Q2

REPORT INFORMATION
  Report Type: Spontaneous
  Country: US (occurrence: US)
  Receive Date: 20130606
  Receipt Date: 20130606
  Transmission Date: 20140414
  Serious: No
  Sender: FDA-Public Use
  Company Number: US-PFIZER INC-2013170341

PATIENT
  Age: 79 Year
  Sex: 0
  Weight: 72.56 kg

DRUGS (14)
  1. SUTENT [Suspect]
     Indication: NEOPLASM MALIGNANT
     Dosage: UNK
     Dates: end: 20130529
  2. METOPROLOL [Concomitant]
     Dosage: UNK
  3. LOSARTAN [Concomitant]
     Dosage: UNK
  4. SIMVASTATIN [Concomitant]
     Dosage: UNK
  5. FELODIPINE [Concomitant]
     Dosage: UNK
  6. PRILOSEC [Concomitant]
     Dosage: UNK
  7. ZYRTEC [Concomitant]
     Dosage: UNK
  8. ASPIRIN [Concomitant]
     Dosage: UNK
  9. VITAMIN D [Concomitant]
     Dosage: UNK
  10. SANDOSTATIN [Concomitant]
     Dosage: UNK
  11. LASIX [Concomitant]
     Dosage: UNK
  12. TYLENOL [Concomitant]
     Dosage: UNK
  13. HYDROCODONE [Concomitant]
     Dosage: UNK
  14. FENTANYL [Concomitant]
     Dosage: UNK

REACTIONS (3)
  - Malaise [Unknown]
  - Disease progression [Unknown]
  - Neoplasm malignant [Unknown]
